FAERS Safety Report 7021045-1 (Version None)
Quarter: 2010Q3

REPORT INFORMATION
  Report Type: 
  Country: None (occurrence: None)
  Receive Date: 20100929
  Receipt Date: 20100923
  Transmission Date: 20110219
  Serious: Yes (Hospitalization, Other)
  Sender: FDA-Public Use
  Company Number: US-PFIZER INC-2010118107

PATIENT
  Sex: Male
  Weight: 81.633 kg

DRUGS (1)
  1. CELEBREX [Suspect]
     Indication: ARTHRALGIA
     Dosage: 1X/DAY
     Route: 048
     Dates: start: 20050601, end: 20050101

REACTIONS (3)
  - ATRIAL FIBRILLATION [None]
  - CARDIAC DISORDER [None]
  - HEART RATE IRREGULAR [None]
